FAERS Safety Report 7611876-9 (Version None)
Quarter: 2011Q3

REPORT INFORMATION
  Report Type: 
  Country: None (occurrence: None)
  Receive Date: 20110715
  Receipt Date: 20110711
  Transmission Date: 20111222
  Serious: Yes (Hospitalization)
  Sender: FDA-Public Use
  Company Number: CA-ABBOTT-11P-028-0838415-00

PATIENT
  Sex: Female
  Weight: 46.308 kg

DRUGS (2)
  1. HUMIRA [Suspect]
     Indication: CROHN'S DISEASE
     Route: 058
     Dates: start: 20080723, end: 20101001
  2. HUMIRA [Suspect]
     Route: 058
     Dates: start: 20101001

REACTIONS (5)
  - WEIGHT DECREASED [None]
  - BLOOD CHOLESTEROL INCREASED [None]
  - BLUE TOE SYNDROME [None]
  - THROMBOPHLEBITIS [None]
  - ABDOMINAL PAIN [None]
